FAERS Safety Report 15552405 (Version 4)
Quarter: 2018Q4

REPORT INFORMATION
  Report Type: Report from Study
  Country: US (occurrence: US)
  Receive Date: 20181025
  Receipt Date: 20181221
  Transmission Date: 20190205
  Serious: No
  Sender: FDA-Public Use
  Company Number: PHEH2018US044275

PATIENT
  Sex: Female
  Weight: 73.47 kg

DRUGS (4)
  1. ENTRESTO [Suspect]
     Active Substance: SACUBITRIL\VALSARTAN
     Indication: CARDIAC FAILURE CHRONIC
     Dosage: UNK, BID
     Route: 048
  2. TORSEMIDE. [Suspect]
     Active Substance: TORSEMIDE
     Indication: PRODUCT USED FOR UNKNOWN INDICATION
     Dosage: UNK
     Route: 065
  3. LASIX [Suspect]
     Active Substance: FUROSEMIDE
     Indication: FLUID RETENTION
     Route: 065
  4. RANEXA [Suspect]
     Active Substance: RANOLAZINE
     Indication: PRODUCT USED FOR UNKNOWN INDICATION
     Route: 065

REACTIONS (9)
  - Dysphonia [Unknown]
  - Weight decreased [Recovering/Resolving]
  - Chest pain [Recovering/Resolving]
  - Weight increased [Unknown]
  - Hypotension [Unknown]
  - Constipation [Unknown]
  - Fluid retention [Recovering/Resolving]
  - Dysphagia [Unknown]
  - Pollakiuria [Unknown]
